FAERS Safety Report 11540614 (Version 1)
Quarter: 2015Q3

REPORT INFORMATION
  Report Type: Spontaneous
  Country: US (occurrence: US)
  Receive Date: 20150923
  Receipt Date: 20150923
  Transmission Date: 20151125
  Serious: No
  Sender: FDA-Public Use
  Company Number: US-BEH-2015051130

PATIENT
  Sex: Female
  Weight: 64 kg

DRUGS (25)
  1. TESTOSTERONE. [Concomitant]
     Active Substance: TESTOSTERONE
  2. PREDNISONE. [Concomitant]
     Active Substance: PREDNISONE
  3. SODIUM CHLORIDE. [Concomitant]
     Active Substance: SODIUM CHLORIDE
  4. KLONOPIN [Concomitant]
     Active Substance: CLONAZEPAM
  5. ESTRADIOL. [Concomitant]
     Active Substance: ESTRADIOL
  6. LEXAPRO [Concomitant]
     Active Substance: ESCITALOPRAM OXALATE
  7. ALLEGRA [Concomitant]
     Active Substance: FEXOFENADINE HYDROCHLORIDE
  8. DIPHENHYDRAMINE. [Concomitant]
     Active Substance: DIPHENHYDRAMINE
  9. EPIPEN [Concomitant]
     Active Substance: EPINEPHRINE
     Indication: ANAPHYLACTIC REACTION
  10. LMX [Concomitant]
     Active Substance: LIDOCAINE
  11. ARMOUR THYROID [Concomitant]
     Active Substance: THYROID, PORCINE\THYROID, UNSPECIFIED
  12. OMEPRAZOLE. [Concomitant]
     Active Substance: OMEPRAZOLE
  13. CALCIUM D [Concomitant]
     Active Substance: CALCIUM\VITAMIN D
  14. AMBIEN [Concomitant]
     Active Substance: ZOLPIDEM TARTRATE
  15. ACETAMINOPHEN. [Concomitant]
     Active Substance: ACETAMINOPHEN
  16. MELATONIN [Concomitant]
     Active Substance: MELATONIN
  17. SUDAFED [Concomitant]
     Active Substance: PSEUDOEPHEDRINE HYDROCHLORIDE
  18. NORTRIPTYLINE [Concomitant]
     Active Substance: NORTRIPTYLINE
  19. PRIVIGEN [Suspect]
     Active Substance: HUMAN IMMUNOGLOBULIN G
     Indication: HYPOGAMMAGLOBULINAEMIA
     Route: 042
  20. HEPARIN [Concomitant]
     Active Substance: HEPARIN SODIUM
  21. FLONASE [Concomitant]
     Active Substance: FLUTICASONE PROPIONATE
  22. VITAMIN D [Concomitant]
     Active Substance: CHOLECALCIFEROL
  23. PROGESTERONE. [Concomitant]
     Active Substance: PROGESTERONE
  24. POTASSIUM [Concomitant]
     Active Substance: POTASSIUM
  25. ASTELIN [Concomitant]
     Active Substance: AZELASTINE HYDROCHLORIDE

REACTIONS (1)
  - Rash [Recovered/Resolved]
